FAERS Safety Report 20639512 (Version 1)
Quarter: 2022Q1

REPORT INFORMATION
  Report Type: Spontaneous
  Country: US (occurrence: US)
  Receive Date: 20220326
  Receipt Date: 20220326
  Transmission Date: 20220423
  Serious: No
  Sender: FDA-Public Use
  Company Number: US-SANOFI-01015002

PATIENT
  Age: 80 Year
  Sex: Female

DRUGS (1)
  1. SOLIQUA 100/33 [Suspect]
     Active Substance: INSULIN GLARGINE\LIXISENATIDE
     Dosage: DRUG STRUCTURE DOSAGE : 20 UNITS DRUG INTERVAL DOSAGE : AT NIGHT DRUG TREATMENT DURATION:2 WEEKS
     Route: 065

REACTIONS (1)
  - Road traffic accident [Unknown]
